FAERS Safety Report 25112510 (Version 2)
Quarter: 2025Q1

REPORT INFORMATION
  Report Type: Spontaneous
  Country: US (occurrence: US)
  Receive Date: 20250324
  Receipt Date: 20250325
  Transmission Date: 20250408
  Serious: No
  Sender: UCB
  Company Number: US-UCBSA-2024061768

PATIENT
  Sex: Male

DRUGS (4)
  1. BIMZELX [Suspect]
     Active Substance: BIMEKIZUMAB-BKZX
     Indication: Psoriasis
     Dosage: 320 MILLIGRAM, EV 4 WEEKS
     Route: 058
     Dates: start: 20241004, end: 2024
  2. BIMZELX [Suspect]
     Active Substance: BIMEKIZUMAB-BKZX
     Dosage: 320 MILLIGRAM, EV 8 WEEKS
     Route: 058
     Dates: start: 2024
  3. CLOBETASOL PROPIONATE [Concomitant]
     Active Substance: CLOBETASOL PROPIONATE
     Indication: Product used for unknown indication
     Dates: start: 20241002
  4. ZORYVE [Concomitant]
     Active Substance: ROFLUMILAST
     Indication: Product used for unknown indication
     Dates: start: 20241002

REACTIONS (3)
  - Ear pruritus [Unknown]
  - Oropharyngeal pain [Not Recovered/Not Resolved]
  - Oral candidiasis [Unknown]

NARRATIVE: CASE EVENT DATE: 20240101
